FAERS Safety Report 9663728 (Version 1)
Quarter: 2013Q4

REPORT INFORMATION
  Report Type: Spontaneous
  Country: GB (occurrence: GB)
  Receive Date: 20131101
  Receipt Date: 20131101
  Transmission Date: 20140711
  Serious: Yes (Hospitalization)
  Sender: FDA-Public Use
  Company Number: PHHY2013GB123485

PATIENT
  Sex: Female

DRUGS (2)
  1. COMTESS [Suspect]
     Indication: PARKINSON^S DISEASE
     Dosage: 200 MG, FOUR TIMES DAILY
     Route: 048
  2. MADOPAR [Suspect]
     Dosage: 200 MG, QID

REACTIONS (1)
  - Fall [Unknown]
